FAERS Safety Report 12352363 (Version 1)
Quarter: 2016Q2

REPORT INFORMATION
  Report Type: Spontaneous
  Country: US (occurrence: US)
  Receive Date: 20160510
  Receipt Date: 20160510
  Transmission Date: 20160815
  Serious: Yes (Death)
  Sender: FDA-Public Use
  Company Number: US-ELI_LILLY_AND_COMPANY-US201604008347

PATIENT
  Sex: Male
  Weight: 82.09 kg

DRUGS (2)
  1. ERBITUX [Suspect]
     Active Substance: CETUXIMAB
     Indication: COLON CANCER STAGE IV
     Dosage: 200 MG, UNKNOWN
     Route: 042
     Dates: start: 20140424, end: 20150706
  2. ERBITUX [Suspect]
     Active Substance: CETUXIMAB
     Indication: CARCINOEMBRYONIC ANTIGEN INCREASED

REACTIONS (1)
  - Malignant neoplasm progression [Fatal]
